FAERS Safety Report 7973626-6 (Version None)
Quarter: 2011Q4

REPORT INFORMATION
  Report Type: 
  Country: None (occurrence: None)
  Receive Date: 20111209
  Receipt Date: 20111127
  Transmission Date: 20120403
  Serious: Yes (Death, Hospitalization)
  Sender: FDA-Public Use
  Company Number: 2011P1013474

PATIENT
  Age: 36 Year
  Sex: Female

DRUGS (2)
  1. DEXAMETHASONE [Concomitant]
  2. PHENYTOIN [Suspect]
     Indication: CONVULSION PROPHYLAXIS
     Dosage: 300 MG; QD

REACTIONS (8)
  - PAIN [None]
  - LUNG INFECTION [None]
  - FEBRILE NEUTROPENIA [None]
  - RADIATION INTERACTION [None]
  - BLOOD GLUCOSE INCREASED [None]
  - ERYTHEMA MULTIFORME [None]
  - GENERAL PHYSICAL HEALTH DETERIORATION [None]
  - RESPIRATORY FAILURE [None]
